FAERS Safety Report 7024557-X (Version None)
Quarter: 2010Q4

REPORT INFORMATION
  Report Type: 
  Country: None (occurrence: None)
  Receive Date: 20101001
  Receipt Date: 20100927
  Transmission Date: 20110411
  Serious: Yes (Other)
  Sender: FDA-Public Use
  Company Number: FI-SANOFI-AVENTIS-2010SA055299

PATIENT
  Age: 74 Year
  Sex: Female

DRUGS (9)
  1. SOLOSTAR [Suspect]
     Route: 058
  2. APIDRA SOLOSTAR [Suspect]
     Route: 058
  3. APIDRA SOLOSTAR [Suspect]
     Route: 058
     Dates: start: 20100804, end: 20100804
  4. SOLOSTAR [Suspect]
     Route: 058
  5. LANTUS [Suspect]
     Route: 058
     Dates: start: 20090101
  6. ISANGINA [Concomitant]
     Route: 048
  7. ORLOC [Concomitant]
     Route: 048
  8. FURESIS [Concomitant]
     Route: 048
  9. MEDROL [Concomitant]
     Route: 048

REACTIONS (1)
  - WRONG DRUG ADMINISTERED [None]
